FAERS Safety Report 4431755-8 (Version None)
Quarter: 2004Q3

REPORT INFORMATION
  Report Type: 
  Country: None (occurrence: None)
  Receive Date: 20040818
  Receipt Date: 20040804
  Transmission Date: 20050211
  Serious: Yes (Death)
  Sender: FDA-Public Use
  Company Number: 2004-BP-06485NB

PATIENT
  Age: 83 Year
  Sex: Female

DRUGS (3)
  1. BI-SIFROL TABLETS (PRAMIPEXOLE DIHYDROCHLORIDE) (TA) [Suspect]
     Indication: PARKINSON'S DISEASE
     Dosage: 0.5 MG , PO
     Route: 048
     Dates: start: 20040715, end: 20040804
  2. OMEPRAZOLE [Concomitant]
  3. PREDNISOLONE (PL) [Concomitant]

REACTIONS (2)
  - CHOKING [None]
  - INJURY ASPHYXIATION [None]
